FAERS Safety Report 5410630-6 (Version None)
Quarter: 2007Q3

REPORT INFORMATION
  Report Type: 
  Country: None (occurrence: None)
  Receive Date: 20070810
  Receipt Date: 20070423
  Transmission Date: 20080115
  Serious: No
  Sender: FDA-Public Use
  Company Number: A0648385A

PATIENT
  Age: 3 Year
  Sex: Female

DRUGS (2)
  1. PAXIL [Suspect]
     Indication: ANXIETY DISORDER
     Dosage: 40MG PER DAY
  2. NO CONCURRENT MEDICATION [Concomitant]

REACTIONS (4)
  - DRUG EXPOSURE DURING PREGNANCY [None]
  - ERYTHEMA [None]
  - FATIGUE [None]
  - HYPERTENSION [None]
